FAERS Safety Report 8504211 (Version 2)
Quarter: 2013Q1

REPORT INFORMATION
  Report Type: Report from Study
  Country: JP (occurrence: JP)
  Receive Date: 20120411
  Receipt Date: 20130123
  Transmission Date: 20140127
  Serious: Yes (Other)
  Sender: FDA-Public Use
  Company Number: JP-ROCHE-1056536

PATIENT
  Age: 72 Year
  Sex: Male

DRUGS (6)
  1. RANIBIZUMAB [Suspect]
     Indication: AGE-RELATED MACULAR DEGENERATION
     Route: 050
     Dates: start: 20090707
  2. RANIBIZUMAB [Suspect]
     Route: 050
     Dates: start: 20091106
  3. VISUDYNE [Concomitant]
     Route: 065
     Dates: start: 20090710
  4. VISUDYNE [Concomitant]
     Route: 065
     Dates: start: 20091106, end: 20091106
  5. GATIFLO [Concomitant]
     Route: 065
     Dates: start: 200907
  6. GATIFLO [Concomitant]
     Route: 065
     Dates: end: 200911

REACTIONS (3)
  - Vitreous haemorrhage [Recovering/Resolving]
  - Visual acuity reduced [Recovering/Resolving]
  - Retinal haemorrhage [Recovered/Resolved]
